FAERS Safety Report 9569309 (Version 1)
Quarter: 2013Q3

REPORT INFORMATION
  Report Type: Spontaneous
  Country: US (occurrence: US)
  Receive Date: 20130930
  Receipt Date: 20130930
  Transmission Date: 20140515
  Serious: No
  Sender: FDA-Public Use
  Company Number: US-AMGEN-USASP2013057833

PATIENT
  Age: 59 Year
  Sex: Male
  Weight: 85.71 kg

DRUGS (17)
  1. ENBREL [Suspect]
     Indication: PRODUCT USED FOR UNKNOWN INDICATION
     Dosage: 50 MG, QWK
     Route: 065
     Dates: start: 200506
  2. ZOCOR [Concomitant]
     Dosage: 5 MG, UNK
  3. LOPRESSOR [Concomitant]
     Dosage: 50 MG, UNK
  4. FLUTICASONE [Concomitant]
     Dosage: 50 MUG, UNK
  5. PREDNISONE [Concomitant]
     Dosage: 1 MG, UNK
  6. K-DUR [Concomitant]
     Dosage: 20 MEQ, UNK
  7. ISOSORB                            /07346401/ [Concomitant]
     Dosage: 20 MG, UNK
  8. LISINOPRIL [Concomitant]
     Dosage: 5 MG, UNK
  9. RANITIDINE [Concomitant]
     Dosage: 75 MG, UNK
  10. TAMSULOSIN [Concomitant]
     Dosage: 0.4 MG, UNK
  11. FOLIC ACID [Concomitant]
     Dosage: 1 MG, UNK
  12. ALBUTEROL                          /00139501/ [Concomitant]
     Dosage: 90 MUG, UNK
  13. METOPROLOL TARTRATE [Concomitant]
     Dosage: 25 MG, UNK
  14. LEVOTHROID [Concomitant]
     Dosage: 125 MUG, UNK
  15. NITROGLYCERIN [Concomitant]
     Dosage: 0.3 MG, UNK
  16. BABY ASPIRIN [Concomitant]
     Dosage: 81 MG, UNK
  17. METHOTREXATE [Concomitant]
     Dosage: 1 G, UNK

REACTIONS (2)
  - Laceration [Unknown]
  - Contusion [Unknown]
